FAERS Safety Report 24761541 (Version 1)
Quarter: 2024Q4

REPORT INFORMATION
  Report Type: Spontaneous
  Country: US (occurrence: US)
  Receive Date: 20241220
  Receipt Date: 20241220
  Transmission Date: 20250114
  Serious: Yes (Life-Threatening, Other)
  Sender: CB FLEET
  Company Number: US-PRESTIGE-202412-US-004311

PATIENT
  Age: 2 Year
  Sex: Male

DRUGS (1)
  1. PEDIA-LAX (DOCUSATE SODIUM) [Suspect]
     Active Substance: DOCUSATE SODIUM
     Indication: Constipation
     Dosage: USED ONCE
     Route: 048

REACTIONS (1)
  - Anaphylactic shock [Recovered/Resolved]
